FAERS Safety Report 6062616-9 (Version None)
Quarter: 2009Q1

REPORT INFORMATION
  Report Type: 
  Country: None (occurrence: None)
  Receive Date: 20090203
  Receipt Date: 20090128
  Transmission Date: 20090719
  Serious: Yes (Death)
  Sender: FDA-Public Use
  Company Number: JP-ALLERGAN-0901130US

PATIENT
  Sex: Female

DRUGS (4)
  1. BOTULINUM TOXIN TYPE A [Suspect]
     Indication: TORTICOLLIS
     Dosage: 68 UNITS, SINGLE
     Route: 030
     Dates: start: 20081028, end: 20081028
  2. BOTULINUM TOXIN TYPE A [Suspect]
     Dosage: 60 UNITS, SINGLE
     Route: 030
     Dates: start: 20080723, end: 20080723
  3. PHENOBARBITAL [Concomitant]
     Indication: HYPERTONIA
     Dosage: 160 MG, QD
     Route: 048
     Dates: start: 20050316
  4. DIAZEPAM [Concomitant]
     Indication: HYPERTONIA
     Dosage: 8 MG, QD
     Route: 048
     Dates: start: 20070511

REACTIONS (1)
  - DEATH [None]
